FAERS Safety Report 6217148-1 (Version None)
Quarter: 2009Q2

REPORT INFORMATION
  Report Type: 
  Country: None (occurrence: None)
  Receive Date: 20090606
  Receipt Date: 20090527
  Transmission Date: 20091009
  Serious: Yes (Other)
  Sender: FDA-Public Use
  Company Number: PHHY2009JP15720

PATIENT
  Sex: Female
  Weight: 45 kg

DRUGS (7)
  1. NEORAL [Suspect]
     Indication: DERMATOMYOSITIS
     Dosage: 75 MG, BID
     Route: 048
     Dates: start: 20090327, end: 20090417
  2. NEORAL [Suspect]
     Indication: INTERSTITIAL LUNG DISEASE
  3. PREDNISOLONE [Concomitant]
     Indication: DERMATOMYOSITIS
     Dosage: 50 MG, UNK
     Route: 048
     Dates: start: 20090327
  4. PREDNISOLONE [Concomitant]
     Indication: INTERSTITIAL LUNG DISEASE
  5. BAKTAR [Concomitant]
     Indication: PROPHYLAXIS
     Dosage: 1 DF, UNK
     Route: 048
     Dates: start: 20090327
  6. GASTER D [Concomitant]
     Indication: PROPHYLAXIS
     Dosage: 20 MG, UNK
     Route: 048
     Dates: start: 20090327
  7. ACTONEL [Concomitant]
     Indication: PROPHYLAXIS
     Dosage: 17.5 MG, UNK
     Route: 048
     Dates: start: 20090327

REACTIONS (6)
  - BLADDER HYPERTROPHY [None]
  - BLOOD URINE PRESENT [None]
  - CYSTITIS INTERSTITIAL [None]
  - DYSURIA [None]
  - HAEMATURIA [None]
  - POLLAKIURIA [None]
